FAERS Safety Report 24157723 (Version 1)
Quarter: 2024Q3

REPORT INFORMATION
  Report Type: Spontaneous
  Country: CN (occurrence: CN)
  Receive Date: 20240731
  Receipt Date: 20240731
  Transmission Date: 20241016
  Serious: Yes (Other)
  Sender: MERCK
  Company Number: CN-009507513-2407CHN015359

PATIENT
  Age: 25 Year
  Sex: Female
  Weight: 55 kg

DRUGS (2)
  1. NOXAFIL [Suspect]
     Active Substance: POSACONAZOLE
     Indication: Infection prophylaxis
     Dosage: 5 ML, TID
     Route: 048
     Dates: start: 20240603, end: 20240610
  2. TIGECYCLINE [Suspect]
     Active Substance: TIGECYCLINE
     Indication: Bacterial infection
     Dosage: 50 MG, Q12H
     Route: 041
     Dates: start: 20240606, end: 20240609

REACTIONS (3)
  - Blood alkaline phosphatase increased [Recovering/Resolving]
  - Acinetobacter infection [Unknown]
  - Product use in unapproved indication [Unknown]

NARRATIVE: CASE EVENT DATE: 20240603
